FAERS Safety Report 9008891 (Version 1)
Quarter: 2013Q1

REPORT INFORMATION
  Report Type: Spontaneous
  Country: US (occurrence: US)
  Receive Date: 20130111
  Receipt Date: 20130111
  Transmission Date: 20140127
  Serious: Yes (Hospitalization, Other)
  Sender: FDA-Public Use
  Company Number: US-009507513-1301USA001735

PATIENT
  Age: 63 Year
  Sex: Female

DRUGS (9)
  1. MONTELUKAST SODIUM [Suspect]
     Route: 048
  2. VICODIN [Concomitant]
     Indication: ASTHMA
  3. GLYCOPYRROLATE [Concomitant]
     Indication: BRONCHOSPASM
  4. FEXOFENADINE HYDROCHLORIDE [Concomitant]
     Indication: FLUID RETENTION
  5. LORAZEPAM [Concomitant]
     Indication: HYPERTENSION
  6. ESTROGENS, CONJUGATED [Concomitant]
  7. LEVOTHYROXINE SODIUM [Concomitant]
  8. FUROSEMIDE [Suspect]
     Dosage: 20 MG, (1 IN 1 D)
  9. NORVASC [Suspect]
     Dosage: 5 MG, (2.5 MG, 2 IN 1 D)
     Route: 048

REACTIONS (25)
  - Hyperhidrosis [Unknown]
  - Asthenia [Unknown]
  - Asthma [Unknown]
  - Blood pressure decreased [Unknown]
  - Blood pressure increased [Unknown]
  - Bronchospasm [Unknown]
  - Cartilage injury [Unknown]
  - Chills [Unknown]
  - Condition aggravated [Unknown]
  - Dizziness [Unknown]
  - Epistaxis [Unknown]
  - Abdominal pain upper [Unknown]
  - Heart rate increased [Unknown]
  - Trismus [Unknown]
  - Insomnia [Unknown]
  - Meniscus injury [Unknown]
  - Nausea [Unknown]
  - Oedema peripheral [Unknown]
  - Pain in extremity [Unknown]
  - Rash [Unknown]
  - Renal disorder [Unknown]
  - Swollen tongue [Unknown]
  - Thinking abnormal [Unknown]
  - Tongue spasm [Unknown]
  - Feeling abnormal [Unknown]
